FAERS Safety Report 4528182-1 (Version None)
Quarter: 2004Q4

REPORT INFORMATION
  Report Type: 
  Country: None (occurrence: None)
  Receive Date: 20041130
  Receipt Date: 20041020
  Transmission Date: 20050328
  Serious: No
  Sender: FDA-Public Use
  Company Number: 702349

PATIENT
  Age: 44 Year
  Sex: Female
  Weight: 100.6985 kg

DRUGS (2)
  1. AMEVIVE [Suspect]
     Indication: PSORIASIS
     Dates: start: 20040101, end: 20040301
  2. AMEVIVE [Suspect]
     Indication: PSORIASIS
     Dates: start: 20040401, end: 20040601

REACTIONS (3)
  - BLOOD GLUCOSE INCREASED [None]
  - PSORIASIS [None]
  - STRESS SYMPTOMS [None]
